FAERS Safety Report 7547778-6 (Version None)
Quarter: 2011Q2

REPORT INFORMATION
  Report Type: 
  Country: None (occurrence: None)
  Receive Date: 20110615
  Receipt Date: 20110607
  Transmission Date: 20111010
  Serious: Yes (Other)
  Sender: FDA-Public Use
  Company Number: FR-AMGEN-FRASP2011006993

PATIENT
  Age: 69 Year
  Sex: Male

DRUGS (6)
  1. METHOTREXATE [Concomitant]
     Indication: PSORIATIC ARTHROPATHY
     Dosage: 10 MG, WEEKLY
     Route: 048
     Dates: start: 20050607
  2. ATORVASTATIN [Concomitant]
     Indication: HYPERLIPIDAEMIA
     Dosage: 10 MG, 1X/DAY
     Route: 048
     Dates: start: 20070101
  3. ENBREL [Suspect]
     Indication: PSORIASIS
     Dosage: 50 MG, WEEKLY
     Route: 058
     Dates: start: 20080527, end: 20110101
  4. ENBREL [Suspect]
     Indication: PSORIATIC ARTHROPATHY
     Dosage: UNK
  5. VOLTARENE                          /00372302/ [Concomitant]
     Indication: PSORIATIC ARTHROPATHY
     Dosage: 75 MG, 2X/DAY
     Route: 048
     Dates: start: 20050607
  6. PANTOPRAZOLE [Concomitant]
     Dosage: 20 MG, 1X/DAY
     Route: 048
     Dates: start: 20050607

REACTIONS (1)
  - BASAL CELL CARCINOMA [None]
